FAERS Safety Report 19661783 (Version 2)
Quarter: 2024Q4

REPORT INFORMATION
  Report Type: Spontaneous
  Country: US (occurrence: US)
  Receive Date: 20210805
  Receipt Date: 20241107
  Transmission Date: 20250115
  Serious: Yes (Other)
  Sender: PFIZER
  Company Number: US-PFIZER INC-202100951774

PATIENT
  Age: 72 Year
  Sex: Female

DRUGS (1)
  1. ESTRING [Suspect]
     Active Substance: ESTRADIOL
     Indication: Menopausal symptoms
     Dosage: 7.5 MCG/24 HOUR
     Route: 067

REACTIONS (3)
  - Meniscus injury [Unknown]
  - Arthralgia [Unknown]
  - Mobility decreased [Unknown]
